FAERS Safety Report 5213283-5 (Version None)
Quarter: 2007Q1

REPORT INFORMATION
  Report Type: 
  Country: None (occurrence: None)
  Receive Date: 20070118
  Receipt Date: 20070118
  Transmission Date: 20070707
  Serious: Yes (Hospitalization)
  Sender: FDA-Public Use
  Company Number: None

PATIENT
  Sex: Male

DRUGS (13)
  1. GEMFIBROZIL [Suspect]
     Indication: HYPERTRIGLYCERIDAEMIA
     Dosage: 600 MG   BID  PO
     Route: 048
     Dates: start: 20060925, end: 20061003
  2. WARFARIN SODIUM [Suspect]
     Indication: ATRIAL FIBRILLATION
     Dosage: 2MG  MWF/3 MG ALL OTHER DAYS   DAILY  PO
     Route: 048
  3. ALLOPURINOL SODIUM [Concomitant]
  4. COMBIVENT [Concomitant]
  5. FUROSEMIDE [Concomitant]
  6. GLIPIZIDE [Concomitant]
  7. LISINOPRIL [Concomitant]
  8. METHYLPREDNISOLONE 16MG TAB [Concomitant]
  9. METOPROLOL SUCCINATE [Concomitant]
  10. OMEPRAZOLE [Concomitant]
  11. PROPOXYPHENE HCL AND ACETAMINOPHEN [Concomitant]
  12. ROSIGLITAZONE [Concomitant]
  13. SIMETHICONE [Concomitant]

REACTIONS (4)
  - EPISTAXIS [None]
  - GOUT [None]
  - HYPERTRIGLYCERIDAEMIA [None]
  - INTERNATIONAL NORMALISED RATIO INCREASED [None]
